FAERS Safety Report 8381274-1 (Version None)
Quarter: 2012Q2

REPORT INFORMATION
  Report Type: 
  Country: None (occurrence: None)
  Receive Date: 20120523
  Receipt Date: 20120516
  Transmission Date: 20120825
  Serious: Yes (Hospitalization)
  Sender: FDA-Public Use
  Company Number: CA-TEVA-339416USA

PATIENT
  Sex: Female

DRUGS (13)
  1. MURINE [Concomitant]
     Indication: DRY EYE
     Dosage: 1 TO 2 DROPS IN BOTH EYES AS NEEDED
     Route: 047
     Dates: start: 20110801
  2. PREMARIN [Concomitant]
     Indication: VULVOVAGINAL DISCOMFORT
     Dosage: FREQUENCY NOT REPORTS
     Route: 067
     Dates: start: 20111227
  3. VITAMIN D [Concomitant]
     Indication: VITAMIN SUPPLEMENTATION
     Dosage: 1000 IU (INTERNATIONAL UNIT);
     Route: 048
     Dates: start: 20070101
  4. ASCORBIC ACID [Concomitant]
     Indication: VITAMIN SUPPLEMENTATION
     Dosage: 250 MILLIGRAM;
     Route: 048
     Dates: start: 20070101
  5. DEXAMETHASONE [Concomitant]
     Indication: NECK PAIN
     Dosage: 4 MILLIGRAM;
     Route: 048
     Dates: start: 20120313, end: 20120410
  6. VITAMIN B-12 [Concomitant]
     Dosage: 1 DF ONCE DAILY IRREGULAR USE
     Dates: start: 20070101
  7. CALTRO [Concomitant]
     Indication: MINERAL SUPPLEMENTATION
     Dosage: FREQUENCY NOT REPORTED
     Dates: start: 20070101
  8. TYLENOS ES [Concomitant]
     Indication: NECK PAIN
     Dosage: 1 TO 2 TABLETS AS NEEDED FOR NECK PAIN AND FEVER
     Route: 048
     Dates: start: 20120313
  9. TREANDA [Suspect]
     Indication: CHRONIC LYMPHOCYTIC LEUKAEMIA
     Dosage: 100 MG/M2
     Route: 042
     Dates: start: 20120502, end: 20120503
  10. TYLENOS ES [Concomitant]
     Indication: PYREXIA
  11. CLONAZEPAM [Concomitant]
     Indication: ANXIETY
     Dosage: 10.5 TAB AT BEDTIME IF NEEDED
     Route: 048
     Dates: start: 20110301
  12. IMMUNE GLOBULIN INTRAVENOUS (HUMAN) [Concomitant]
     Indication: HYPOGAMMAGLOBULINAEMIA
     Dosage: 1 IN 1 M
     Route: 042
     Dates: start: 20120430
  13. PROTHALMIC VISCOUS EYE DROPS [Concomitant]
     Indication: EYE INFECTION
     Dosage: FREQUENCY NOT REPORTED
     Route: 047
     Dates: start: 20120424, end: 20120501

REACTIONS (1)
  - RENAL COLIC [None]
